FAERS Safety Report 8841015 (Version 1)
Quarter: 2012Q4

REPORT INFORMATION
  Report Type: 
  Country: US (occurrence: US)
  Receive Date: 20121015
  Receipt Date: 20121015
  Transmission Date: 20130627
  Serious: Yes (Other)
  Sender: FDA-Public Use
  Company Number: US-ROCHE-1139766

PATIENT
  Sex: Male
  Weight: 53.7 kg

DRUGS (1)
  1. PROTROPIN [Suspect]
     Indication: DWARFISM
     Route: 058
     Dates: start: 199406

REACTIONS (4)
  - Convulsion [Unknown]
  - Skin candida [Unknown]
  - Acne [Unknown]
  - Weight increased [Unknown]
